FAERS Safety Report 11248298 (Version 1)
Quarter: 2015Q3

REPORT INFORMATION
  Report Type: Spontaneous
  Country: US (occurrence: US)
  Receive Date: 20150708
  Receipt Date: 20150708
  Transmission Date: 20151125
  Serious: No
  Sender: FDA-Public Use
  Company Number: US-ELI_LILLY_AND_COMPANY-US200810003263

PATIENT
  Age: 22 Year
  Sex: Female

DRUGS (2)
  1. PRENATAL VITAMINS [Concomitant]
     Active Substance: VITAMINS
     Dosage: UNK, UNKNOWN
     Route: 065
  2. PROZAC [Suspect]
     Active Substance: FLUOXETINE HYDROCHLORIDE
     Dosage: UNK, UNKNOWN
     Route: 065
     Dates: end: 20010614

REACTIONS (4)
  - Anxiety [Recovering/Resolving]
  - Exposure during pregnancy [Unknown]
  - Depression [Recovering/Resolving]
  - Hyperventilation [Recovered/Resolved]

NARRATIVE: CASE EVENT DATE: 20010617
